FAERS Safety Report 5586830-1 (Version None)
Quarter: 2008Q1

REPORT INFORMATION
  Report Type: 
  Country: None (occurrence: None)
  Receive Date: 20080110
  Receipt Date: 20080102
  Transmission Date: 20080703
  Serious: Yes (Hospitalization)
  Sender: FDA-Public Use
  Company Number: AU-PURDUE-USA_2008_0030928

PATIENT
  Age: 70 Year
  Sex: Male

DRUGS (6)
  1. OXYCONTIN [Suspect]
     Indication: DRUG USE FOR UNKNOWN INDICATION
     Dosage: 5 MG, DAILY
     Route: 048
     Dates: start: 20061205, end: 20061206
  2. NOTEN [Concomitant]
     Dates: start: 20061128, end: 20061209
  3. CLEXANE [Concomitant]
     Dates: start: 20061204, end: 20061209
  4. ACETAMINOPHEN W/ CODEINE [Concomitant]
     Dates: start: 20061204, end: 20061209
  5. LIPITOR [Concomitant]
     Dates: start: 20061128, end: 20061209
  6. STILNOX [Concomitant]
     Dates: start: 20061130, end: 20061206

REACTIONS (3)
  - CONFUSIONAL STATE [None]
  - DISORIENTATION [None]
  - FALL [None]
